FAERS Safety Report 4540009-0 (Version None)
Quarter: 2004Q4

REPORT INFORMATION
  Report Type: 
  Country: None (occurrence: None)
  Receive Date: 20041228
  Receipt Date: 20041221
  Transmission Date: 20050328
  Serious: Yes (Other)
  Sender: FDA-Public Use
  Company Number: US-ABBOTT-04P-163-0284272-00

PATIENT

DRUGS (1)
  1. ULTANE [Suspect]
     Indication: ANAESTHESIA
     Route: 055
     Dates: start: 20041201, end: 20041201

REACTIONS (3)
  - ANAESTHETIC COMPLICATION [None]
  - MEDICATION ERROR [None]
  - UNWANTED AWARENESS DURING ANAESTHESIA [None]
